FAERS Safety Report 6947353-8 (Version None)
Quarter: 2010Q3

REPORT INFORMATION
  Report Type: 
  Country: None (occurrence: None)
  Receive Date: 20100827
  Receipt Date: 20090930
  Transmission Date: 20110219
  Serious: No
  Sender: FDA-Public Use
  Company Number: US-ABBOTT-09P-163-0596772-00

PATIENT
  Sex: Female
  Weight: 57.204 kg

DRUGS (6)
  1. NIASPAN [Suspect]
     Indication: BLOOD CHOLESTEROL INCREASED
     Route: 048
     Dates: start: 20090501, end: 20090801
  2. NIASPAN [Suspect]
     Dates: start: 20090801, end: 20090830
  3. NIASPAN [Suspect]
     Dates: start: 20090902
  4. CELEXA [Concomitant]
     Indication: DEPRESSION
     Route: 048
  5. PRILOSEC OTC [Concomitant]
     Indication: GASTROOESOPHAGEAL REFLUX DISEASE
     Route: 048
  6. ASPIRIN [Concomitant]
     Indication: PRODUCT USED FOR UNKNOWN INDICATION
     Route: 048
     Dates: end: 20090901

REACTIONS (5)
  - INCORRECT DRUG ADMINISTRATION DURATION [None]
  - PRURITUS [None]
  - RASH [None]
  - RASH MACULAR [None]
  - SKIN BURNING SENSATION [None]
